FAERS Safety Report 9434569 (Version 4)
Quarter: 2014Q2

REPORT INFORMATION
  Report Type: Spontaneous
  Country: US (occurrence: US)
  Receive Date: 20130801
  Receipt Date: 20140611
  Transmission Date: 20141212
  Serious: No
  Sender: FDA-Public Use
  Company Number: US-PFIZER INC-2013222175

PATIENT
  Age: 59 Year
  Sex: Female

DRUGS (4)
  1. AVINZA [Suspect]
     Indication: MULTIPLE SCLEROSIS
     Dosage: 60 MG, 2X/DAY
     Route: 048
  2. AVINZA [Suspect]
     Indication: PAIN IN EXTREMITY
  3. AVINZA [Suspect]
     Indication: SPINAL DISORDER
  4. ADDERALL XR [Suspect]
     Dosage: UNK

REACTIONS (5)
  - Drug ineffective [Unknown]
  - Incorrect product storage [Unknown]
  - Poor quality drug administered [Unknown]
  - Malaise [Unknown]
  - Movement disorder [Unknown]
